FAERS Safety Report 24623586 (Version 2)
Quarter: 2024Q4

REPORT INFORMATION
  Report Type: Spontaneous
  Country: US (occurrence: US)
  Receive Date: 20241115
  Receipt Date: 20241204
  Transmission Date: 20250114
  Serious: Yes (Death, Other)
  Sender: RANBAXY
  Company Number: US-SUN PHARMACEUTICAL INDUSTRIES LTD-2024R1-478634

PATIENT
  Age: 71 Year
  Sex: Female

DRUGS (1)
  1. ILUMYA [Suspect]
     Active Substance: TILDRAKIZUMAB-ASMN
     Indication: Psoriasis
     Dosage: 100 MILLIGRAM
     Route: 065
     Dates: start: 20220613, end: 20240401

REACTIONS (4)
  - Death [Fatal]
  - Product dose omission issue [Unknown]
  - Therapy partial responder [Unknown]
  - Renal failure [Unknown]

NARRATIVE: CASE EVENT DATE: 20240614
